FAERS Safety Report 15507842 (Version 1)
Quarter: 2018Q4

REPORT INFORMATION
  Report Type: Spontaneous
  Country: BR (occurrence: BR)
  Receive Date: 20181016
  Receipt Date: 20181016
  Transmission Date: 20190205
  Serious: Yes (Hospitalization)
  Sender: FDA-Public Use
  Company Number: BR-ALLERGAN-1849000US

PATIENT
  Sex: Male

DRUGS (1)
  1. ATROPINA 1% [Suspect]
     Active Substance: ATROPINE
     Indication: EYE DISORDER
     Dosage: 40 GTT, SINGLE
     Route: 048

REACTIONS (3)
  - Coma [Recovered/Resolved]
  - Accidental exposure to product [Unknown]
  - Headache [Not Recovered/Not Resolved]
